FAERS Safety Report 5450828-4 (Version None)
Quarter: 2007Q3

REPORT INFORMATION
  Report Type: 
  Country: None (occurrence: None)
  Receive Date: 20070913
  Receipt Date: 20070911
  Transmission Date: 20080115
  Serious: Yes (Life-Threatening, Hospitalization)
  Sender: FDA-Public Use
  Company Number: PHRM2007FR02161

PATIENT
  Age: 56 Year
  Sex: Female
  Weight: 90 kg

DRUGS (13)
  1. TRIFLUCAN [Suspect]
     Indication: CANDIDIASIS
     Dosage: 400 MG DAILY
     Route: 048
     Dates: start: 20070705, end: 20070723
  2. FRAXODI [Suspect]
     Indication: THROMBOPHLEBITIS
     Dosage: 0.8 ML PER DAY
     Route: 058
     Dates: start: 20070716, end: 20070802
  3. CYCLOPHOSPHAMIDE [Concomitant]
     Indication: ACUTE LYMPHOCYTIC LEUKAEMIA
     Dosage: 300 MG BID /M2/DAY
     Dates: start: 20070615, end: 20070617
  4. DOXORUBICIN HCL [Concomitant]
     Indication: ACUTE LYMPHOCYTIC LEUKAEMIA
     Dosage: 50 MG/M2
     Dates: start: 20070618, end: 20070618
  5. DEXAMETHASONE 0.5MG TAB [Concomitant]
     Indication: ACUTE LYMPHOCYTIC LEUKAEMIA
     Dosage: 40 MG DAILY
     Route: 048
     Dates: start: 20070615, end: 20070618
  6. NEULASTA [Concomitant]
     Indication: ACUTE LYMPHOCYTIC LEUKAEMIA
     Dosage: 6 MG, ONCE/SINGLE
     Dates: start: 20070620, end: 20070620
  7. NEULASTA [Concomitant]
     Dosage: 6 MG, ONCE/SINGLE
     Dates: start: 20070724, end: 20070724
  8. METHOTREXATE [Concomitant]
     Indication: ACUTE LYMPHOCYTIC LEUKAEMIA
     Dosage: 1 G/M2
     Dates: start: 20070719, end: 20070719
  9. CYTARABINE [Concomitant]
     Indication: ACUTE LYMPHOCYTIC LEUKAEMIA
     Dosage: 3 G/M2 BID
     Dates: start: 20070720, end: 20070721
  10. COVERSYL /FRA/ [Concomitant]
     Indication: HYPERTENSION
  11. LOXEN [Concomitant]
     Indication: HYPERTENSION
  12. GLEEVEC [Suspect]
     Indication: ACUTE LYMPHOCYTIC LEUKAEMIA
     Dosage: 400 MG, BID
     Route: 048
     Dates: start: 20070615, end: 20070726
  13. GLEEVEC [Suspect]
     Dosage: 400 MG, BID
     Route: 048
     Dates: start: 20070719, end: 20070802

REACTIONS (11)
  - APHASIA [None]
  - CANDIDIASIS [None]
  - DEPRESSED LEVEL OF CONSCIOUSNESS [None]
  - GLASGOW COMA SCALE ABNORMAL [None]
  - MENINGORRHAGIA [None]
  - NUCLEAR MAGNETIC RESONANCE IMAGING [None]
  - PANCYTOPENIA [None]
  - STATUS EPILEPTICUS [None]
  - SUBDURAL HAEMATOMA [None]
  - THROMBOCYTOPENIA [None]
  - THROMBOPHLEBITIS [None]
